FAERS Safety Report 4948726-5 (Version None)
Quarter: 2006Q1

REPORT INFORMATION
  Report Type: 
  Country: None (occurrence: None)
  Receive Date: 20060313
  Receipt Date: 20060302
  Transmission Date: 20060701
  Serious: Yes (Other)
  Sender: FDA-Public Use
  Company Number: HQWYE104302MAR06

PATIENT
  Sex: Female

DRUGS (3)
  1. PANTOPRAZOLE SODIUM [Suspect]
     Dosage: 40 MG 1X PER 1 DAY ORAL
     Route: 048
     Dates: start: 20050125, end: 20050126
  2. BETAHISTINE (BETAHISTINE) [Concomitant]
  3. DIAZEPAM [Concomitant]

REACTIONS (3)
  - DRUG HYPERSENSITIVITY [None]
  - OEDEMA MUCOSAL [None]
  - SWOLLEN TONGUE [None]
